FAERS Safety Report 10064207 (Version 1)
Quarter: 2014Q1

REPORT INFORMATION
  Report Type: Spontaneous
  Country: US (occurrence: None)
  Receive Date: 20140106
  Receipt Date: 20140106
  Transmission Date: 20141002
  Serious: No
  Sender: FDA-Public Use
  Company Number: 2013-00141

PATIENT
  Age: 62 Year
  Sex: Female
  Weight: 195 kg

DRUGS (3)
  1. UNSPECIFIED ZICAM PRODUCT [Suspect]
     Indication: NASOPHARYNGITIS
     Dosage: 1 RAPIDMELT
     Route: 048
     Dates: start: 20131105, end: 20131114
  2. MULTIVITAMIN [Concomitant]
  3. UNKNOWN MEDICATION FOR BLADDER CONTROL [Concomitant]

REACTIONS (2)
  - Ageusia [None]
  - Tongue coated [None]
